FAERS Safety Report 19838391 (Version 1)
Quarter: 2021Q3

REPORT INFORMATION
  Report Type: Spontaneous
  Country: US (occurrence: US)
  Receive Date: 20210915
  Receipt Date: 20210915
  Transmission Date: 20211014
  Serious: No
  Sender: FDA-Public Use
  Company Number: US-EYEVANCE PHARMACEUTICALS-2021EYE00067

PATIENT
  Sex: Female

DRUGS (1)
  1. ZERVIATE [Suspect]
     Active Substance: CETIRIZINE HYDROCHLORIDE
     Dosage: UNK, ONCE
     Route: 047

REACTIONS (2)
  - Drug hypersensitivity [Recovered/Resolved]
  - Instillation site pain [Recovered/Resolved]
